FAERS Safety Report 7641999-X (Version None)
Quarter: 2011Q3

REPORT INFORMATION
  Report Type: 
  Country: None (occurrence: None)
  Receive Date: 20110727
  Receipt Date: 20110727
  Transmission Date: 20111222
  Serious: Yes (Hospitalization)
  Sender: FDA-Public Use
  Company Number: None

PATIENT
  Age: 77 Year
  Sex: Male
  Weight: 106.5 kg

DRUGS (2)
  1. METHOTREXATE [Suspect]
     Indication: RHEUMATOID ARTHRITIS
     Dosage: 24 MG QWEEK PO
     Route: 048
     Dates: start: 20040408, end: 20110628
  2. ADALIMUMAB [Suspect]
     Indication: RHEUMATOID ARTHRITIS
     Dosage: 40 MG OTHER SQ
     Route: 058
     Dates: start: 20070814, end: 20110628

REACTIONS (1)
  - HERPES ZOSTER DISSEMINATED [None]
